FAERS Safety Report 24027294 (Version 2)
Quarter: 2024Q3

REPORT INFORMATION
  Report Type: Report from Study
  Country: US (occurrence: US)
  Receive Date: 20240628
  Receipt Date: 20240725
  Transmission Date: 20241017
  Serious: No
  Sender: ACADIA PHARMACEUTICALS
  Company Number: US-ACADIA PHARMACEUTICALS INC.-ACA-2024-PIM-002703

PATIENT
  Sex: Male

DRUGS (7)
  1. NUPLAZID [Suspect]
     Active Substance: PIMAVANSERIN TARTRATE
     Indication: Parkinson^s disease psychosis
     Dosage: 34 MILLIGRAM, QD
     Route: 048
     Dates: start: 20240518
  2. CLONAZEPAM [Concomitant]
     Active Substance: CLONAZEPAM
  3. ARTEMETHER [Concomitant]
     Active Substance: ARTEMETHER
  4. SINEMET [Concomitant]
     Active Substance: CARBIDOPA\LEVODOPA
  5. AMANTADINE [Concomitant]
     Active Substance: AMANTADINE
  6. LEXAPRO [Concomitant]
     Active Substance: ESCITALOPRAM OXALATE
  7. ROPINIROLE [Concomitant]
     Active Substance: ROPINIROLE

REACTIONS (4)
  - Balance disorder [Unknown]
  - Delusion [Unknown]
  - Tremor [Not Recovered/Not Resolved]
  - Hallucination [Recovered/Resolved]

NARRATIVE: CASE EVENT DATE: 20040101
